FAERS Safety Report 7283099-7 (Version None)
Quarter: 2011Q1

REPORT INFORMATION
  Report Type: 
  Country: None (occurrence: None)
  Receive Date: 20110209
  Receipt Date: 20110201
  Transmission Date: 20110831
  Serious: Yes (Other)
  Sender: FDA-Public Use
  Company Number: ES-ROCHE-754827

PATIENT
  Sex: Female
  Weight: 67 kg

DRUGS (7)
  1. METHOTREXATE [Concomitant]
     Dates: start: 20010101, end: 20090812
  2. FOLIC ACID [Concomitant]
     Dates: start: 20010101, end: 20090812
  3. LEVOTIROXINA SODICA [Concomitant]
     Dosage: DRUG NAME: LEVOTIROXIN
  4. DIAZEPAN [Concomitant]
     Dosage: DRUG NAME: DAICEPAN
  5. ATENOLOL [Concomitant]
  6. INDOMETHACIN [Concomitant]
     Dates: start: 20010101
  7. TOCILIZUMAB [Suspect]
     Indication: RHEUMATOID ARTHRITIS
     Route: 042
     Dates: start: 20090707, end: 20090707

REACTIONS (1)
  - HEPATITIS [None]
